FAERS Safety Report 5185756-5 (Version None)
Quarter: 2006Q4

REPORT INFORMATION
  Report Type: 
  Country: None (occurrence: None)
  Receive Date: 20061220
  Receipt Date: 20061206
  Transmission Date: 20070319
  Serious: Yes (Other)
  Sender: FDA-Public Use
  Company Number: JP-BRISTOL-MYERS SQUIBB COMPANY-13613419

PATIENT
  Age: 42 Year
  Sex: Male

DRUGS (3)
  1. EFAVIRENZ [Suspect]
     Indication: HIV INFECTION
     Dosage: INTERRUPTED FROM 20-JUN-2002 UNTIL 30-OCT-2002
     Route: 048
     Dates: start: 20020612, end: 20020101
  2. ZERIT [Concomitant]
     Dosage: INTERRUPTED FROM 20-JUN-2002 UNTIL 30-OCT-2002
     Dates: start: 20020612, end: 20020101
  3. EPIVIR [Concomitant]
     Dosage: INTERRUPTED FROM 20-JUN-2002 TO 30-OCT-2002 INTERRUPTED ON UNSPECIFIED DATE RESTARTED ON 10-DEC-2002
     Dates: start: 20020612

REACTIONS (4)
  - GRANULOMATOUS LIVER DISEASE [None]
  - HEPATOMEGALY [None]
  - LYMPHADENOPATHY MEDIASTINAL [None]
  - PYREXIA [None]
